FAERS Safety Report 4608608-5 (Version None)
Quarter: 2005Q1

REPORT INFORMATION
  Report Type: 
  Country: None (occurrence: None)
  Receive Date: 20050311
  Receipt Date: 20050221
  Transmission Date: 20050727
  Serious: Yes (Other)
  Sender: FDA-Public Use
  Company Number: B0373536A

PATIENT
  Age: 68 Year
  Sex: Female

DRUGS (1)
  1. LITHIUM CARBONATE [Suspect]

REACTIONS (5)
  - DIABETES INSIPIDUS [None]
  - HYPERPARATHYROIDISM [None]
  - HYPOTHYROIDISM [None]
  - PARATHYROID TUMOUR BENIGN [None]
  - SICK SINUS SYNDROME [None]
